FAERS Safety Report 8971793 (Version 1)
Quarter: 2012Q4

REPORT INFORMATION
  Report Type: 
  Country: US (occurrence: US)
  Receive Date: 20121217
  Receipt Date: 20121217
  Transmission Date: 20130627
  Serious: Yes (Other)
  Sender: FDA-Public Use
  Company Number: US-COVIDIEN/TYCO HEALTHCARE/MALLINCKRODT-T201204273

PATIENT
  Sex: Female

DRUGS (2)
  1. GABLOFEN [Suspect]
     Dosage: 999 mcg, qd
  2. GABLOFEN [Suspect]
     Dosage: 500 mcg qd

REACTIONS (2)
  - Muscle spasms [Not Recovered/Not Resolved]
  - Hiccups [Unknown]
